FAERS Safety Report 6076811-6 (Version None)
Quarter: 2009Q1

REPORT INFORMATION
  Report Type: 
  Country: None (occurrence: None)
  Receive Date: 20090213
  Receipt Date: 20090205
  Transmission Date: 20090719
  Serious: Yes (Hospitalization, Other)
  Sender: FDA-Public Use
  Company Number: US-JNJFOC-20061006140

PATIENT
  Sex: Male
  Weight: 69.4 kg

DRUGS (1)
  1. RISPERDAL [Suspect]
     Indication: SCHIZOAFFECTIVE DISORDER

REACTIONS (6)
  - DRUG HYPERSENSITIVITY [None]
  - HEADACHE [None]
  - JAUNDICE [None]
  - OVERDOSE [None]
  - PANCREATITIS [None]
  - SUICIDE ATTEMPT [None]
